FAERS Safety Report 7974897 (Version 2)
Quarter: 2014Q1

REPORT INFORMATION
  Report Type: Spontaneous
  Country: US (occurrence: US)
  Receive Date: 20110606
  Receipt Date: 20140102
  Transmission Date: 20141002
  Serious: Yes (Other)
  Sender: FDA-Public Use
  Company Number: US-JNJFOC-20110512296

PATIENT
  Age: 53 Year
  Sex: Female
  Weight: 58.97 kg

DRUGS (6)
  1. DURAGESIC [Suspect]
     Indication: PAIN
     Route: 062
     Dates: start: 2001, end: 2011
  2. DURAGESIC [Suspect]
     Indication: PAIN
     Route: 062
     Dates: start: 2011
  3. UNKNOWN MEDICATION [Suspect]
     Indication: PAIN
     Route: 065
     Dates: start: 2011, end: 2011
  4. DURAGESIC [Suspect]
     Indication: PAIN
     Route: 062
  5. LORTAB [Concomitant]
     Indication: BREAKTHROUGH PAIN
     Route: 048
     Dates: start: 2001
  6. BENZODIAZEPINES NOS [Concomitant]
     Indication: ANXIETY
     Route: 048

REACTIONS (8)
  - Toxicity to various agents [Recovered/Resolved]
  - Medication error [Unknown]
  - Drug administered at inappropriate site [Not Recovered/Not Resolved]
  - Drug administered at inappropriate site [Not Recovered/Not Resolved]
  - Wrong technique in drug usage process [Not Recovered/Not Resolved]
  - Application site pruritus [Recovered/Resolved]
  - Wrong technique in drug usage process [Not Recovered/Not Resolved]
  - Product quality issue [Unknown]
